FAERS Safety Report 7247338-0 (Version None)
Quarter: 2011Q1

REPORT INFORMATION
  Report Type: 
  Country: None (occurrence: None)
  Receive Date: 20110127
  Receipt Date: 20110119
  Transmission Date: 20110831
  Serious: Yes (Disabling)
  Sender: FDA-Public Use
  Company Number: Z0006866A

PATIENT
  Sex: Female
  Weight: 62 kg

DRUGS (8)
  1. GINKO [Concomitant]
  2. TYLENOL-500 [Concomitant]
  3. PAZOPANIB [Suspect]
     Indication: OVARIAN CANCER
     Dosage: 800MG PER DAY
     Route: 048
     Dates: start: 20090909
  4. BROMAZEPAM [Concomitant]
  5. IBANDRONATE SODIUM [Concomitant]
  6. NICARDIPINE HYDROCHLORIDE [Concomitant]
  7. CIRKAN [Concomitant]
  8. SYNTHROID [Concomitant]

REACTIONS (1)
  - HYPOACUSIS [None]
